FAERS Safety Report 13961491 (Version 1)
Quarter: 2017Q3

REPORT INFORMATION
  Report Type: Spontaneous
  Country: US (occurrence: US)
  Receive Date: 20170912
  Receipt Date: 20170912
  Transmission Date: 20171128
  Serious: No
  Sender: FDA-Public Use
  Company Number: US-PFIZER INC-2017394245

PATIENT
  Age: 91 Year
  Sex: Female

DRUGS (1)
  1. AROMASIN [Suspect]
     Active Substance: EXEMESTANE

REACTIONS (2)
  - Post herpetic neuralgia [Unknown]
  - Herpes zoster [Unknown]

NARRATIVE: CASE EVENT DATE: 201611
